FAERS Safety Report 10244248 (Version 5)
Quarter: 2014Q3

REPORT INFORMATION
  Report Type: Spontaneous
  Country: FR (occurrence: FR)
  Receive Date: 20140618
  Receipt Date: 20140922
  Transmission Date: 20150326
  Serious: Yes (Hospitalization)
  Sender: FDA-Public Use
  Company Number: FR-PFIZER INC-2014162524

PATIENT
  Age: 86 Year
  Sex: Female
  Weight: 46 kg

DRUGS (11)
  1. LYRICA [Suspect]
     Active Substance: PREGABALIN
     Indication: OSTEOPOROSIS
     Dosage: 100 MG, 2X/DAY
     Route: 048
     Dates: start: 201403, end: 20140502
  2. DAFALGAN [Concomitant]
     Active Substance: ACETAMINOPHEN
     Dosage: 500 MG, 6X/DAY
  3. ORAMORPH SR SUSTAINED RELEASE [Interacting]
     Active Substance: MORPHINE SULFATE
     Indication: BONE PAIN
     Dosage: UNK
     Route: 048
     Dates: start: 20140417
  4. ACTISKENAN [Interacting]
     Active Substance: MORPHINE SULFATE
     Dosage: 5 MG (1 DF), 1X/DAY AS NEEDED
     Route: 048
     Dates: start: 2012, end: 20140502
  5. VOGALENE [Concomitant]
     Active Substance: METOPIMAZINE
     Dosage: 15 MG, 1X/DAY
     Route: 048
  6. PASSIFLORA INCARNATA [Concomitant]
     Active Substance: PASSIFLORA INCARNATA FLOWERING TOP
     Dosage: 1 DF, 2X/DAY
     Route: 048
  7. PAROXETINE [Interacting]
     Active Substance: PAROXETINE\PAROXETINE HYDROCHLORIDE
     Dosage: 30 MG (1.5 DF), DAILY
     Route: 048
     Dates: end: 20140419
  8. PERINDOPRIL [Concomitant]
     Active Substance: PERINDOPRIL
     Dosage: 4 MG, 1X/DAY
     Route: 048
  9. SERESTA [Interacting]
     Active Substance: OXAZEPAM
     Dosage: 50 MG, 1X/DAY
     Route: 048
     Dates: start: 2012, end: 20140502
  10. DUROGESIC [Interacting]
     Active Substance: FENTANYL
     Indication: OSTEOPOROSIS
     Dosage: 1 DF OF 50 UG/HOUR (8.4 MG/21 CM2) EVERY 3 DAYS
     Route: 062
     Dates: start: 201403, end: 20140419
  11. UVEDOSE [Concomitant]
     Active Substance: CHOLECALCIFEROL
     Dosage: 100000 IU, 1X/DAY
     Route: 048

REACTIONS (6)
  - Asthenia [Recovered/Resolved]
  - Somnolence [Recovered/Resolved]
  - Hypoventilation [Recovered/Resolved]
  - Constipation [Recovered/Resolved]
  - Drug interaction [Recovered/Resolved]
  - Disorientation [Recovered/Resolved]

NARRATIVE: CASE EVENT DATE: 20140419
